FAERS Safety Report 11031305 (Version 3)
Quarter: 2015Q2

REPORT INFORMATION
  Report Type: Spontaneous
  Country: US (occurrence: US)
  Receive Date: 20150415
  Receipt Date: 20150603
  Transmission Date: 20150821
  Serious: No
  Sender: FDA-Public Use
  Company Number: US-PFIZER INC-2015124860

PATIENT
  Age: 90 Year
  Sex: Female
  Weight: 51 kg

DRUGS (15)
  1. LYRICA [Suspect]
     Active Substance: PREGABALIN
     Indication: PRURITUS
     Dosage: 50 MG, 2X/DAY
     Dates: start: 2015, end: 2015
  2. VITAMIN D3 [Suspect]
     Active Substance: CHOLECALCIFEROL
     Dosage: UNK
  3. LYRICA [Suspect]
     Active Substance: PREGABALIN
     Dosage: 175 MG, UNK
     Dates: start: 2015
  4. LYRICA [Suspect]
     Active Substance: PREGABALIN
     Dosage: 100 MG, 2X/DAY
  5. LYRICA [Suspect]
     Active Substance: PREGABALIN
     Dosage: 100 MG, UNK
     Dates: start: 2015
  6. VITAMIN B12 [Suspect]
     Active Substance: CYANOCOBALAMIN
     Dosage: UNK
  7. AMITIZA [Concomitant]
     Active Substance: LUBIPROSTONE
     Indication: IRRITABLE BOWEL SYNDROME
     Dosage: UNK
  8. TYLENOL [Concomitant]
     Active Substance: ACETAMINOPHEN
     Dosage: UNK
  9. LYRICA [Suspect]
     Active Substance: PREGABALIN
     Dosage: 150 MG, UNK
     Dates: start: 2015, end: 2015
  10. ALPHAGEN [Concomitant]
     Dosage: UNK
  11. LOSARTAN [Concomitant]
     Active Substance: LOSARTAN
     Dosage: UNK
  12. SIMETHICONE [Concomitant]
     Active Substance: DIMETHICONE\SILICON DIOXIDE\SIMETHICONE
     Dosage: UNK
  13. LYRICA [Suspect]
     Active Substance: PREGABALIN
     Dosage: 75 MG, UNK
     Dates: start: 2015, end: 2015
  14. FLUOXETINE [Concomitant]
     Active Substance: FLUOXETINE\FLUOXETINE HYDROCHLORIDE
     Dosage: UNK
  15. ARMOUR THYROID [Concomitant]
     Active Substance: THYROID, PORCINE\THYROID, UNSPECIFIED
     Dosage: UNK

REACTIONS (12)
  - Somnolence [Recovered/Resolved]
  - Neuropathy peripheral [Unknown]
  - Sleep apnoea syndrome [Unknown]
  - Abdominal discomfort [Unknown]
  - Disease progression [Unknown]
  - Arthritis [Unknown]
  - Product use issue [Unknown]
  - Snoring [Unknown]
  - Diarrhoea [Unknown]
  - Pruritus [Recovered/Resolved]
  - Abdominal pain [Unknown]
  - Blood blister [Unknown]
